FAERS Safety Report 9786202 (Version 2)
Quarter: 2014Q1

REPORT INFORMATION
  Report Type: Spontaneous
  Country: US (occurrence: US)
  Receive Date: 20131227
  Receipt Date: 20140127
  Transmission Date: 20141002
  Serious: Yes (Other)
  Sender: FDA-Public Use
  Company Number: US-BRISTOL-MYERS SQUIBB COMPANY-19925668

PATIENT
  Age: 73 Year
  Sex: Male
  Weight: 123.81 kg

DRUGS (4)
  1. ELIQUIS [Suspect]
     Indication: ATRIAL FIBRILLATION
     Dosage: 10MG TWICE A DAY
  2. METOPROLOL [Concomitant]
  3. FLOMAX [Concomitant]
     Dosage: AT BEDTIME
  4. TYLENOL [Concomitant]

REACTIONS (2)
  - Abdominal pain [Unknown]
  - Drug dose omission [Unknown]
